FAERS Safety Report 15314321 (Version 1)
Quarter: 2018Q3

REPORT INFORMATION
  Report Type: Spontaneous
  Country: US (occurrence: US)
  Receive Date: 20180814
  Receipt Date: 20180814
  Transmission Date: 20181010
  Serious: No
  Sender: FDA-Public Use
  Company Number: None

PATIENT
  Age: 57 Year
  Sex: Female
  Weight: 59.87 kg

DRUGS (3)
  1. AIMOVIG [Suspect]
     Active Substance: ERENUMAB-AOOE
     Indication: MIGRAINE
     Dosage: ?          OTHER ROUTE:INJECTION?
     Dates: start: 20180608
  2. VAGIFEM [Concomitant]
     Active Substance: ESTRADIOL
  3. SPIRONOLACTONE. [Concomitant]
     Active Substance: SPIRONOLACTONE

REACTIONS (2)
  - Raynaud^s phenomenon [None]
  - Condition aggravated [None]

NARRATIVE: CASE EVENT DATE: 20180701
